FAERS Safety Report 4931053-X (Version None)
Quarter: 2006Q1

REPORT INFORMATION
  Report Type: 
  Country: None (occurrence: None)
  Receive Date: 20060227
  Receipt Date: 20060213
  Transmission Date: 20060701
  Serious: Yes (Other)
  Sender: FDA-Public Use
  Company Number: RENA-11683

PATIENT
  Age: 50 Year
  Sex: Male
  Weight: 58 kg

DRUGS (7)
  1. RENAGEL [Suspect]
     Indication: HYPERPHOSPHATAEMIA
     Dosage: 0.5 G TID PO
     Route: 048
     Dates: start: 20050914, end: 20051212
  2. CALTAN (CALCIUM CARBONATE) [Concomitant]
  3. ADALAT [Concomitant]
  4. CARDENALIN [Concomitant]
  5. NITOROL [Concomitant]
  6. SILECE [Concomitant]
  7. FERRICON (CIDEFERRON) [Concomitant]

REACTIONS (1)
  - ABDOMINAL DISTENSION [None]
